FAERS Safety Report 12426221 (Version 1)
Quarter: 2016Q2

REPORT INFORMATION
  Report Type: Spontaneous
  Country: US (occurrence: US)
  Receive Date: 20160601
  Receipt Date: 20160601
  Transmission Date: 20160815
  Serious: No
  Sender: FDA-Public Use
  Company Number: US-MARKSANS PHARMA LIMITED-1053043

PATIENT
  Age: 82 Year
  Sex: Male
  Weight: 86.18 kg

DRUGS (2)
  1. GABAPENTIN. [Suspect]
     Active Substance: GABAPENTIN
     Indication: NEURALGIA
     Route: 048
  2. CARAFATE [Interacting]
     Active Substance: SUCRALFATE
     Route: 048

REACTIONS (1)
  - Dyspepsia [None]
